FAERS Safety Report 21662413 (Version 1)
Quarter: 2022Q4

REPORT INFORMATION
  Report Type: Spontaneous
  Country: US (occurrence: None)
  Receive Date: 20221129
  Receipt Date: 20221129
  Transmission Date: 20230112
  Serious: Yes (Life-Threatening, Other)
  Sender: FDA-Public Use
  Company Number: None

PATIENT
  Age: 70 Year
  Sex: Male
  Weight: 75.6 kg

DRUGS (1)
  1. TECARTUS [Suspect]
     Active Substance: BREXUCABTAGENE AUTOLEUCEL
     Indication: Mantle cell lymphoma
     Dates: start: 20220705

REACTIONS (12)
  - Cytokine release syndrome [None]
  - Hypotension [None]
  - Atrial fibrillation [None]
  - Dyspnoea [None]
  - Hypoxia [None]
  - Bradycardia [None]
  - Pulseless electrical activity [None]
  - Ventricular fibrillation [None]
  - Respiratory failure [None]
  - COVID-19 [None]
  - Lactic acidosis [None]
  - Renal impairment [None]

NARRATIVE: CASE EVENT DATE: 20220710
